FAERS Safety Report 6014747-7 (Version None)
Quarter: 2008Q4

REPORT INFORMATION
  Report Type: 
  Country: None (occurrence: None)
  Receive Date: 20081219
  Receipt Date: 20081205
  Transmission Date: 20090506
  Serious: Yes (Hospitalization)
  Sender: FDA-Public Use
  Company Number: FR-GENENTECH-243728

PATIENT
  Age: 78 Year
  Sex: Female

DRUGS (4)
  1. RAPTIVA [Suspect]
     Indication: PSORIASIS
     Dosage: 80 MG, 1/WEEK
     Route: 058
     Dates: start: 20070101, end: 20070530
  2. RAPTIVA [Suspect]
     Dates: start: 20070101
  3. ENBREL [Suspect]
     Indication: PSORIATIC ARTHROPATHY
     Dosage: UNK, UNK
     Dates: start: 20061002, end: 20061201
  4. VASTAREL [Suspect]
     Indication: DRUG USE FOR UNKNOWN INDICATION
     Dosage: UNK
     Dates: end: 20070510

REACTIONS (1)
  - CYTOMEGALOVIRUS COLITIS [None]
